FAERS Safety Report 18013472 (Version 4)
Quarter: 2020Q3

REPORT INFORMATION
  Report Type: Spontaneous
  Country: US (occurrence: US)
  Receive Date: 20200713
  Receipt Date: 20200811
  Transmission Date: 20201103
  Serious: No
  Sender: FDA-Public Use
  Company Number: US-SA-2020SA179774

PATIENT

DRUGS (1)
  1. TOUJEO [Suspect]
     Active Substance: INSULIN GLARGINE
     Indication: TYPE 2 DIABETES MELLITUS
     Dosage: 56 IU, ONCE DAILY
     Route: 065

REACTIONS (1)
  - Blood glucose increased [Recovered/Resolved]
